FAERS Safety Report 6721589-3 (Version None)
Quarter: 2010Q2

REPORT INFORMATION
  Report Type: 
  Country: None (occurrence: None)
  Receive Date: 20100512
  Receipt Date: 20100428
  Transmission Date: 20101027
  Serious: Yes (Hospitalization)
  Sender: FDA-Public Use
  Company Number: PHHY2010FR27656

PATIENT
  Sex: Female

DRUGS (2)
  1. VOLTAREN [Suspect]
     Dosage: 1 DF, BID
     Route: 048
     Dates: start: 20091205, end: 20091201
  2. DOLIPRANE [Suspect]
     Dosage: UNK
     Dates: start: 20091205, end: 20091214

REACTIONS (9)
  - ARTHRALGIA [None]
  - CHOLESTASIS [None]
  - CYTOLYTIC HEPATITIS [None]
  - GASTROINTESTINAL DISORDER [None]
  - HEPATOMEGALY [None]
  - MICROCYTIC ANAEMIA [None]
  - PYREXIA [None]
  - SARCOIDOSIS [None]
  - SERUM FERRITIN INCREASED [None]
